FAERS Safety Report 25379617 (Version 1)
Quarter: 2025Q2

REPORT INFORMATION
  Report Type: Spontaneous
  Country: US (occurrence: None)
  Receive Date: 20250530
  Receipt Date: 20250530
  Transmission Date: 20250717
  Serious: Yes (Hospitalization)
  Sender: FDA-CTU
  Company Number: None

PATIENT
  Sex: Female

DRUGS (6)
  1. KESIMPTA [Suspect]
     Active Substance: OFATUMUMAB
     Indication: Multiple sclerosis
     Dates: start: 20240727
  2. AMLODIPINE [Concomitant]
     Active Substance: AMLODIPINE BESYLATE
  3. IBASAGLAR INJ [Concomitant]
  4. MODAFINIL TAB [Concomitant]
  5. TURMERIC GAP [Concomitant]
  6. VITAMIN B12 TAB [Concomitant]

REACTIONS (5)
  - Central nervous system lesion [None]
  - Diabetes mellitus [None]
  - Mobility decreased [None]
  - Fall [None]
  - Therapy interrupted [None]
